FAERS Safety Report 8830447 (Version 4)
Quarter: 2012Q4

REPORT INFORMATION
  Report Type: 
  Country: JP (occurrence: JP)
  Receive Date: 20121009
  Receipt Date: 20121115
  Transmission Date: 20130627
  Serious: Yes (Other)
  Sender: FDA-Public Use
  Company Number: JP-SANOFI-AVENTIS-2012SA071549

PATIENT
  Age: 88 Year
  Sex: Female
  Weight: 59.5 kg

DRUGS (12)
  1. LASIX [Suspect]
     Indication: HYPERTENSION
     Route: 048
     Dates: start: 20120821
  2. LASIX [Suspect]
     Indication: SWELLING OF LEGS
     Route: 048
     Dates: start: 20120821
  3. FUROSEMIDE [Suspect]
     Indication: HYPERTENSION
     Route: 048
     Dates: start: 20120522, end: 20120820
  4. FUROSEMIDE [Suspect]
     Indication: SWELLING OF LEGS
     Route: 048
     Dates: start: 20120522, end: 20120820
  5. ALDACTONE-A [Concomitant]
     Indication: HYPERTENSION
     Route: 048
     Dates: start: 20120821
  6. ALDACTONE-A [Concomitant]
     Indication: SWELLING OF LEGS
     Route: 048
     Dates: start: 20120821
  7. AZOPT [Concomitant]
     Indication: GLAUCOMA
     Dosage: form: ophthalmic solution
     Route: 047
  8. DEPAS [Concomitant]
     Indication: INSOMNIA
     Route: 048
     Dates: start: 20120821
  9. ZOPICLONE [Concomitant]
     Indication: INSOMNIA
     Route: 048
     Dates: start: 20120821
  10. ZEFNART [Concomitant]
     Indication: TINEA PEDIS
     Route: 062
     Dates: start: 201112
  11. TARIVID [Concomitant]
     Dosage: drop
     Route: 047
  12. TRAVATAN [Concomitant]
     Indication: GLAUCOMA
     Dosage: drop
     Route: 047

REACTIONS (4)
  - Glycosylated haemoglobin increased [Recovering/Resolving]
  - Blood uric acid increased [Recovering/Resolving]
  - Blood urea increased [Unknown]
  - Blood creatinine increased [Unknown]
